FAERS Safety Report 9178222 (Version 1)
Quarter: 2013Q1

REPORT INFORMATION
  Report Type: Spontaneous
  Country: US (occurrence: US)
  Receive Date: 20130321
  Receipt Date: 20130321
  Transmission Date: 20140127
  Serious: No
  Sender: FDA-Public Use
  Company Number: US-009507513-1303USA007617

PATIENT
  Age: 55 Year
  Sex: Male

DRUGS (1)
  1. DULERA [Suspect]
     Dosage: 2 PUFF, BID
     Route: 055
     Dates: start: 20130129

REACTIONS (3)
  - Wheezing [Recovering/Resolving]
  - Incorrect dose administered [Unknown]
  - Drug dose omission [Unknown]
